FAERS Safety Report 9295284 (Version 1)
Quarter: 2013Q2

REPORT INFORMATION
  Report Type: Spontaneous
  Country: FR (occurrence: FR)
  Receive Date: 20130517
  Receipt Date: 20130517
  Transmission Date: 20140414
  Serious: Yes (Life-Threatening, Hospitalization)
  Sender: FDA-Public Use
  Company Number: FR-JNJFOC-20130506942

PATIENT
  Age: 62 Year
  Sex: Female

DRUGS (10)
  1. IMODIUM [Suspect]
     Indication: CONSTIPATION
     Route: 048
     Dates: start: 20121018, end: 20121021
  2. REVLIMID [Suspect]
     Indication: PLASMA CELL MYELOMA
     Dosage: C4D14
     Route: 005
     Dates: start: 20120323, end: 20121021
  3. VELCADE [Suspect]
     Indication: PLASMA CELL MYELOMA
     Dosage: C4D11
     Route: 065
     Dates: start: 20120323, end: 20121018
  4. DEXAMETHASONE [Suspect]
     Indication: PLASMA CELL MYELOMA
     Dosage: C4D12
     Route: 065
     Dates: start: 20120323, end: 20121019
  5. ZELITREX [Suspect]
     Indication: PRODUCT USED FOR UNKNOWN INDICATION
     Route: 048
     Dates: start: 20120323
  6. AMOXICILLIN [Suspect]
     Indication: PRODUCT USED FOR UNKNOWN INDICATION
     Route: 048
     Dates: start: 20120323
  7. BACTRIM (TRIMETHOPRIM/SULFAMETHOXAZOLE) [Suspect]
     Indication: PRODUCT USED FOR UNKNOWN INDICATION
     Route: 048
     Dates: start: 20120323
  8. INNOHEP [Suspect]
     Indication: PRODUCT USED FOR UNKNOWN INDICATION
     Route: 058
     Dates: start: 20120323
  9. EUPANTOL [Suspect]
     Indication: PRODUCT USED FOR UNKNOWN INDICATION
     Route: 048
     Dates: start: 20120323
  10. SMECTA [Suspect]
     Indication: CONSTIPATION
     Route: 048
     Dates: start: 20121018, end: 20121021

REACTIONS (4)
  - Abdominal pain [Not Recovered/Not Resolved]
  - Haemolytic uraemic syndrome [Recovered/Resolved]
  - Rectal haemorrhage [Not Recovered/Not Resolved]
  - Off label use [Recovered/Resolved]
